FAERS Safety Report 10896276 (Version 8)
Quarter: 2015Q3

REPORT INFORMATION
  Report Type: Spontaneous
  Country: US (occurrence: US)
  Receive Date: 20150309
  Receipt Date: 20150805
  Transmission Date: 20151125
  Serious: Yes (Other)
  Sender: FDA-Public Use
  Company Number: US-AMGEN-USASP2015019635

PATIENT
  Sex: Male

DRUGS (6)
  1. PREDNISONE. [Concomitant]
     Active Substance: PREDNISONE
     Dosage: 15 MG, UNK
  2. ENBREL [Suspect]
     Active Substance: ETANERCEPT
     Indication: RHEUMATOID ARTHRITIS
     Dosage: UNK
     Route: 065
     Dates: start: 2007
  3. PLAQUENIL [Concomitant]
     Active Substance: HYDROXYCHLOROQUINE SULFATE
     Indication: PAIN
     Dosage: 200 MG, BID
  4. CIMZIA [Suspect]
     Active Substance: CERTOLIZUMAB PEGOL
     Indication: RHEUMATOID ARTHRITIS
     Dosage: UNK
     Route: 065
  5. HUMIRA [Suspect]
     Active Substance: ADALIMUMAB
     Indication: RHEUMATOID ARTHRITIS
     Dosage: UNK
     Route: 065
     Dates: start: 2012
  6. ORENCIA [Concomitant]
     Active Substance: ABATACEPT
     Dosage: UNK UNK, QMO

REACTIONS (9)
  - Fatigue [Unknown]
  - Dysphagia [Unknown]
  - Thyroid neoplasm [Unknown]
  - Dysgeusia [Unknown]
  - Therapeutic response decreased [Unknown]
  - Joint swelling [Recovered/Resolved]
  - Dyspnoea [Unknown]
  - Pain [Unknown]
  - Skin infection [Unknown]

NARRATIVE: CASE EVENT DATE: 2012
